FAERS Safety Report 25212344 (Version 6)
Quarter: 2025Q3

REPORT INFORMATION
  Report Type: Report from Study
  Country: US (occurrence: US)
  Receive Date: 20250418
  Receipt Date: 20250728
  Transmission Date: 20251021
  Serious: No
  Sender: SUNOVION
  Company Number: US-SUMITOMO PHARMA SWITZERLAND GMBH-2025SPA003727

PATIENT

DRUGS (31)
  1. ORGOVYX [Suspect]
     Active Substance: RELUGOLIX
     Indication: Prostate cancer
     Route: 048
  2. ORGOVYX [Suspect]
     Active Substance: RELUGOLIX
     Dosage: 120 MG, QD
     Route: 048
     Dates: start: 202502
  3. DOXYCYCLINE HYCLATE [Concomitant]
     Active Substance: DOXYCYCLINE HYCLATE
     Route: 048
  4. ESCITALOPRAM OXALATE [Concomitant]
     Active Substance: ESCITALOPRAM OXALATE
     Route: 048
  5. EFUDEX [Concomitant]
     Active Substance: FLUOROURACIL
     Route: 061
  6. GARLIC [Concomitant]
     Active Substance: GARLIC
     Route: 048
  7. HYDROCORTISONE [Concomitant]
     Active Substance: HYDROCORTISONE
     Route: 061
  8. TRESIBA [Concomitant]
     Active Substance: INSULIN DEGLUDEC
     Route: 058
  9. HUMALOG [Concomitant]
     Active Substance: INSULIN LISPRO
     Route: 065
  10. NIZORAL [Concomitant]
     Active Substance: KETOCONAZOLE
     Route: 061
  11. LATANOPROST [Concomitant]
     Active Substance: LATANOPROST
     Route: 047
  12. LIDOCAINE HYDROCHLORIDE [Concomitant]
     Active Substance: LIDOCAINE HYDROCHLORIDE
     Route: 065
  13. MINOXIDIL [Concomitant]
     Active Substance: MINOXIDIL
     Route: 048
  14. Adult multivitamin [Concomitant]
     Route: 048
  15. FISH OIL [Concomitant]
     Active Substance: FISH OIL
     Route: 048
  16. MOUNJARO [Concomitant]
     Active Substance: TIRZEPATIDE
     Route: 058
  17. TOCOPHEROL [Concomitant]
     Active Substance: TOCOPHEROL
     Route: 048
  18. OLMESARTAN MEDOXOMIL [Concomitant]
     Active Substance: OLMESARTAN MEDOXOMIL
     Route: 048
  19. TADALAFIL [Concomitant]
     Active Substance: TADALAFIL
     Route: 048
  20. FINASTERIDE [Concomitant]
     Active Substance: FINASTERIDE
     Route: 048
  21. HERBALS\TURMERIC [Concomitant]
     Active Substance: HERBALS\TURMERIC
     Route: 065
  22. CHOLECALCIFEROL [Concomitant]
     Active Substance: CHOLECALCIFEROL
     Route: 048
  23. LISINOPRIL [Concomitant]
     Active Substance: LISINOPRIL
     Route: 048
  24. PROLIA [Concomitant]
     Active Substance: DENOSUMAB
     Route: 058
  25. ALBUTEROL SULFATE [Concomitant]
     Active Substance: ALBUTEROL SULFATE
     Route: 055
  26. ANASTROZOLE [Concomitant]
     Active Substance: ANASTROZOLE
     Route: 048
  27. BUSPIRONE HCL [Concomitant]
     Active Substance: BUSPIRONE HYDROCHLORIDE
     Route: 065
  28. CICLOPIROX [Concomitant]
     Active Substance: CICLOPIROX
     Route: 065
  29. COLCHICINE [Concomitant]
     Active Substance: COLCHICINE
     Route: 048
  30. CLOBETASOL [Concomitant]
     Active Substance: CLOBETASOL
     Route: 065
  31. Free s [Concomitant]
     Route: 065

REACTIONS (6)
  - Vision blurred [Unknown]
  - Joint stiffness [Not Recovered/Not Resolved]
  - Hot flush [Unknown]
  - Fatigue [Not Recovered/Not Resolved]
  - Arthralgia [Not Recovered/Not Resolved]
  - Diarrhoea [Unknown]
